FAERS Safety Report 12115659 (Version 9)
Quarter: 2016Q3

REPORT INFORMATION
  Report Type: Spontaneous
  Country: BR (occurrence: BR)
  Receive Date: 20160225
  Receipt Date: 20160916
  Transmission Date: 20161109
  Serious: Yes (Other)
  Sender: FDA-Public Use
  Company Number: BR-PFIZER INC-2016114763

PATIENT
  Age: 77 Year
  Sex: Female
  Weight: 68.4 kg

DRUGS (19)
  1. VECASTEN [Concomitant]
     Indication: VARICOSE VEIN
     Dosage: 1 TABLET PER DAY
  2. TALIGLUCERASE ALFA [Suspect]
     Active Substance: TALIGLUCERASE ALFA
     Indication: GAUCHER^S DISEASE
     Dosage: 20 FLASKS, INFUSIONS EVERY 15 DAYS
     Dates: start: 201503
  3. OSSOTRAT-D [Concomitant]
     Indication: MINERAL SUPPLEMENTATION
     Dosage: DAILY
  4. CARVEDILOL. [Concomitant]
     Active Substance: CARVEDILOL
     Indication: ARRHYTHMIA
     Dosage: 25 MG, UNK
  5. LABIRIN [Concomitant]
     Active Substance: BETAHISTINE
     Indication: DIZZINESS
  6. GEROVITAL [Concomitant]
     Indication: VITAMIN SUPPLEMENTATION
     Dosage: 6 TABLETS, DAILY
  7. FISIOTON [Concomitant]
     Indication: VITAMIN SUPPLEMENTATION
     Dosage: 1 TABLET IN THE MORNING, 1X/DAY
  8. FOLIC ACID. [Concomitant]
     Active Substance: FOLIC ACID
     Dosage: UNK
  9. GEROVITAL [Concomitant]
     Indication: ASTHENIA
  10. CAPTOPRIL. [Concomitant]
     Active Substance: CAPTOPRIL
     Indication: BLOOD PRESSURE INCREASED
  11. XARELTO [Concomitant]
     Active Substance: RIVAROXABAN
     Indication: ANTICOAGULANT THERAPY
     Dosage: ONE TABLET (20MG), DAILY (IN THE MORNING)
  12. TALIGLUCERASE ALFA [Suspect]
     Active Substance: TALIGLUCERASE ALFA
     Dosage: 20 OR 22 FLASKS ^IU/KG^, EVERY 15 DAYS
  13. TALIGLUCERASE ALFA [Suspect]
     Active Substance: TALIGLUCERASE ALFA
     Dosage: 25 FLASKS, EVERY 15 DAYS
  14. CONCARDIO [Concomitant]
     Active Substance: BISOPROLOL FUMARATE
     Indication: ARRHYTHMIA
     Dosage: ONE TABLET (^2.5^), DAILY
  15. CAPTOPRIL. [Concomitant]
     Active Substance: CAPTOPRIL
     Indication: BLOOD PRESSURE ABNORMAL
     Dosage: ONLY 1 TABLET
  16. IBUPROFEN. [Concomitant]
     Active Substance: IBUPROFEN
     Indication: PAIN
     Dosage: UNK
  17. TALIGLUCERASE ALFA [Suspect]
     Active Substance: TALIGLUCERASE ALFA
     Dosage: 22-24 U, EVERY 15 DAYS
  18. XARELTO [Concomitant]
     Active Substance: RIVAROXABAN
     Indication: ARRHYTHMIA
  19. CONCARDIO [Concomitant]
     Active Substance: BISOPROLOL FUMARATE
     Indication: CARDIAC DISORDER

REACTIONS (27)
  - Bone pain [Not Recovered/Not Resolved]
  - Pain [Unknown]
  - Hypoaesthesia [Unknown]
  - Injection site discolouration [Not Recovered/Not Resolved]
  - Dysphagia [Unknown]
  - Wrist fracture [Unknown]
  - Arrhythmia [Recovering/Resolving]
  - Fatigue [Not Recovered/Not Resolved]
  - Nasopharyngitis [Recovered/Resolved]
  - Dysphonia [Recovered/Resolved]
  - Spinal disorder [Unknown]
  - Feeling abnormal [Unknown]
  - Pain in extremity [Unknown]
  - Asthenia [Recovering/Resolving]
  - Stress [Unknown]
  - Musculoskeletal chest pain [Unknown]
  - Fall [Recovered/Resolved]
  - Condition aggravated [Recovering/Resolving]
  - Limb injury [Recovered/Resolved]
  - Throat irritation [Recovered/Resolved]
  - Platelet count decreased [Unknown]
  - Abasia [Unknown]
  - Hernia [Unknown]
  - Arthralgia [Unknown]
  - Dizziness [Recovered/Resolved]
  - Musculoskeletal pain [Not Recovered/Not Resolved]
  - Memory impairment [Unknown]

NARRATIVE: CASE EVENT DATE: 2013
